FAERS Safety Report 6335650-9 (Version None)
Quarter: 2009Q3

REPORT INFORMATION
  Report Type: 
  Country: None (occurrence: None)
  Receive Date: 20090826
  Receipt Date: 20090813
  Transmission Date: 20100115
  Serious: Yes (Disabling)
  Sender: FDA-Public Use
  Company Number: 2009AP002710

PATIENT
  Age: 43 Year
  Sex: Female

DRUGS (2)
  1. SERTRALINE HYDROCHLORIDE [Suspect]
     Indication: DEPRESSION
     Dosage: PO
     Route: 048
  2. IBUPROFEN [Suspect]
     Dosage: PO
     Route: 048

REACTIONS (1)
  - OSTEONECROSIS [None]
